FAERS Safety Report 7742904-8 (Version None)
Quarter: 2011Q3

REPORT INFORMATION
  Report Type: 
  Country: None (occurrence: None)
  Receive Date: 20110912
  Receipt Date: 20110831
  Transmission Date: 20111222
  Serious: Yes (Hospitalization)
  Sender: FDA-Public Use
  Company Number: GB-ELI_LILLY_AND_COMPANY-GB201107004831

PATIENT
  Sex: Female
  Weight: 62.9 kg

DRUGS (11)
  1. LEVOTHYROXINE SODIUM [Concomitant]
     Dosage: 100 UG, QD
     Route: 048
  2. PRAVASTATIN [Concomitant]
     Indication: CARDIOVASCULAR EVENT PROPHYLAXIS
     Dosage: 40 MG, QD
     Route: 048
  3. OMEPRAZOLE [Concomitant]
     Indication: GASTROOESOPHAGEAL REFLUX PROPHYLAXIS
     Dosage: 20 MG, PRN
     Route: 048
  4. GEMCITABINE HYDROCHLORIDE [Suspect]
     Indication: MANTLE CELL LYMPHOMA
     Dosage: 1.6 G, WEEKLY (1/W)
     Dates: start: 20110606
  5. LACTULOSE [Concomitant]
     Indication: CONSTIPATION
     Dosage: 20 ML, PRN
  6. GEMCITABINE HYDROCHLORIDE [Suspect]
     Dosage: 1200 MG, WEEKLY (1/W)
     Dates: start: 20110801
  7. ASPIRIN [Concomitant]
     Indication: ANGINA PECTORIS
     Dosage: 75 MG, QD
     Route: 048
  8. CALCIUM D3 [Concomitant]
     Indication: BLOOD CALCIUM DECREASED
     Dosage: 1 DF, QD
     Route: 048
  9. NITROGLYCERIN [Concomitant]
     Indication: ANGINA PECTORIS
  10. NITROGLYCERIN [Concomitant]
     Indication: ANGINA PECTORIS
     Dosage: UNK, PRN
  11. BISOPROLOL FUMARATE [Concomitant]
     Indication: HYPERTENSION
     Dosage: 2.5 MG, QD
     Route: 048

REACTIONS (1)
  - SOFT TISSUE INFECTION [None]
